FAERS Safety Report 7098506-2 (Version None)
Quarter: 2010Q4

REPORT INFORMATION
  Report Type: 
  Country: None (occurrence: None)
  Receive Date: 20101112
  Receipt Date: 20101102
  Transmission Date: 20110411
  Serious: Yes (Other)
  Sender: FDA-Public Use
  Company Number: AU-BAYER-201040269GPV

PATIENT
  Age: 57 Year
  Sex: Male
  Weight: 89 kg

DRUGS (5)
  1. NEXAVAR [Suspect]
     Indication: HEPATIC CANCER METASTATIC
     Dosage: TOTAL DAILY DOSE: 800 MG  UNIT DOSE: 200 MG
     Route: 048
     Dates: start: 20100908, end: 20100918
  2. TACROLIMUS [Concomitant]
     Indication: LIVER TRANSPLANT
     Dosage: TOTAL DAILY DOSE: 4 MG
     Dates: start: 20100218
  3. PREDNISOLONE [Concomitant]
     Indication: IMMUNOSUPPRESSION
     Dates: start: 20100218
  4. ESOMEPRAZOLE [Concomitant]
     Indication: GASTROOESOPHAGEAL REFLUX DISEASE
     Dosage: TOTAL DAILY DOSE: 40 MG
     Dates: start: 20100308
  5. LAMIVUDINE [Concomitant]
     Indication: ANTIVIRAL TREATMENT
     Dates: start: 20100220

REACTIONS (13)
  - ARRHYTHMIA [None]
  - BLISTER [None]
  - COUGH [None]
  - HYPERTENSION [None]
  - IMMUNOSUPPRESSANT DRUG LEVEL DECREASED [None]
  - NAUSEA [None]
  - OEDEMA MUCOSAL [None]
  - PARAESTHESIA [None]
  - PRURITUS [None]
  - PYREXIA [None]
  - RASH [None]
  - RASH GENERALISED [None]
  - RESPIRATORY DISTRESS [None]
